FAERS Safety Report 7451062-9 (Version None)
Quarter: 2011Q2

REPORT INFORMATION
  Report Type: 
  Country: None (occurrence: None)
  Receive Date: 20110502
  Receipt Date: 20110418
  Transmission Date: 20111010
  Serious: Yes (Other)
  Sender: FDA-Public Use
  Company Number: CN-SANOFI-AVENTIS-2011SA026537

PATIENT

DRUGS (7)
  1. FLUDARABINE PHOSPHATE [Suspect]
     Indication: NON-HODGKIN'S LYMPHOMA
     Dosage: DAYS 1 TO 3 OF 28 DAY CYCLE
     Route: 065
  2. MITOXANTRONE [Suspect]
     Indication: NON-HODGKIN'S LYMPHOMA
     Dosage: ONCE ON DAY 1
     Route: 065
  3. DEXAMETHASONE [Suspect]
     Indication: NON-HODGKIN'S LYMPHOMA
     Dosage: DAYS 1 TO 5 OF A 28 DAY CYCLE
     Route: 065
  4. FLUDARABINE PHOSPHATE [Suspect]
     Dosage: DAYS 1 TO 3 OF 28 DAY CYCLE
     Route: 065
  5. EPIRUBICIN [Suspect]
     Indication: NON-HODGKIN'S LYMPHOMA
     Dosage: DAY 1 OF EACH 28 DAY CYCLE
     Route: 065
  6. DEXAMETHASONE [Suspect]
     Dosage: DAYS 1 TO 5 OF A 28 DAY CYCLE
     Route: 065
  7. EPIRUBICIN [Suspect]
     Dosage: DAY 1 OF EACH 28 DAY CYCLE
     Route: 065

REACTIONS (12)
  - HERPES ZOSTER [None]
  - LEUKOPENIA [None]
  - PNEUMONIA [None]
  - LIVER DISORDER [None]
  - CARDIOTOXICITY [None]
  - BONE MARROW FAILURE [None]
  - THROMBOCYTOPENIA [None]
  - TUBERCULOSIS [None]
  - INFECTION [None]
  - CYTOMEGALOVIRUS GASTRITIS [None]
  - DISEASE RECURRENCE [None]
  - NEUTROPENIA [None]
